FAERS Safety Report 17090955 (Version 2)
Quarter: 2021Q1

REPORT INFORMATION
  Report Type: Other
  Country: US (occurrence: US)
  Receive Date: 20191129
  Receipt Date: 20210324
  Transmission Date: 20210419
  Serious: Yes (Other)
  Sender: FDA-Public Use
  Company Number: US-ROCHE-2478302

PATIENT
  Age: 72 Year
  Sex: Male

DRUGS (5)
  1. ZELBORAF [Suspect]
     Active Substance: VEMURAFENIB
     Indication: ERDHEIM-CHESTER DISEASE
     Dosage: 4 PILLS EVERY 12 HOURS FOR 60 DAYS ;ONGOING: NO
     Route: 065
     Dates: start: 2017
  2. PREDNISONE. [Concomitant]
     Active Substance: PREDNISONE
     Indication: RETROPERITONEAL FIBROSIS
     Dates: start: 2019
  3. ZELBORAF [Suspect]
     Active Substance: VEMURAFENIB
     Indication: IRON DEFICIENCY
     Dosage: 1 PILL EVERY 12 HOURS ;ONGOING: NO
     Route: 065
     Dates: start: 201907
  4. ZELBORAF [Suspect]
     Active Substance: VEMURAFENIB
     Indication: HISTIOCYTOSIS
     Dosage: 1 PILL EVERY 24 HOURS ;ONGOING: YES
     Route: 065
     Dates: start: 20191001
  5. ZELBORAF [Suspect]
     Active Substance: VEMURAFENIB
     Route: 048

REACTIONS (10)
  - Renal impairment [Unknown]
  - Heart rate increased [Unknown]
  - Exophthalmos [Unknown]
  - Abdominal pain upper [Recovered/Resolved]
  - Periorbital swelling [Recovered/Resolved]
  - Arthralgia [Recovered/Resolved]
  - Ill-defined disorder [Unknown]
  - Kidney fibrosis [Unknown]
  - Prostatomegaly [Not Recovered/Not Resolved]
  - Eye pain [Recovering/Resolving]

NARRATIVE: CASE EVENT DATE: 2017
